FAERS Safety Report 8470356-1 (Version None)
Quarter: 2012Q2

REPORT INFORMATION
  Report Type: 
  Country: None (occurrence: None)
  Receive Date: 20120627
  Receipt Date: 20120619
  Transmission Date: 20120825
  Serious: Yes (Other)
  Sender: FDA-Public Use
  Company Number: PL-BAYER-2010-006667

PATIENT
  Age: 23 Year
  Sex: Female
  Weight: 59 kg

DRUGS (1)
  1. YAZ [Suspect]
     Indication: CONTRACEPTION
     Dosage: UNK UNK, QD
     Dates: start: 20100702, end: 20100709

REACTIONS (7)
  - VERTIGO [None]
  - DIARRHOEA [None]
  - NAUSEA [None]
  - SYNCOPE [None]
  - VOMITING [None]
  - HEADACHE [None]
  - DIZZINESS [None]
